FAERS Safety Report 5220712-X (Version None)
Quarter: 2007Q1

REPORT INFORMATION
  Report Type: 
  Country: None (occurrence: None)
  Receive Date: 20070125
  Receipt Date: 20070125
  Transmission Date: 20070707
  Serious: Yes (Hospitalization)
  Sender: FDA-Public Use
  Company Number: None

PATIENT
  Sex: Male
  Weight: 65.7716 kg

DRUGS (8)
  1. ENALAPRIL MALEATE [Suspect]
     Dosage: PO
     Route: 048
  2. SPIRONOLACTONE [Suspect]
     Dosage: PO
     Route: 048
  3. ATACAND [Suspect]
     Dosage: PO
     Route: 048
  4. LASIX [Suspect]
     Dosage: PO
     Route: 048
  5. COREG [Concomitant]
  6. COUMADIN [Concomitant]
  7. LIPITOR [Concomitant]
  8. EPOGEN [Concomitant]

REACTIONS (2)
  - HYPERKALAEMIA [None]
  - RENAL FAILURE ACUTE [None]
